FAERS Safety Report 4779645-5 (Version None)
Quarter: 2005Q3

REPORT INFORMATION
  Report Type: 
  Country: None (occurrence: None)
  Receive Date: 20050914
  Receipt Date: 20050225
  Transmission Date: 20060218
  Serious: Yes (Death, Hospitalization)
  Sender: FDA-Public Use
  Company Number: 163-20785-05020572

PATIENT
  Age: 71 Year
  Sex: Female
  Weight: 64 kg

DRUGS (24)
  1. THALOMID [Suspect]
     Indication: MULTIPLE MYELOMA
     Dosage: SEE IMAGE
     Route: 048
     Dates: start: 20040821, end: 20040824
  2. THALOMID [Suspect]
     Indication: MULTIPLE MYELOMA
     Dosage: SEE IMAGE
     Route: 048
     Dates: start: 20040908, end: 20040921
  3. THALOMID [Suspect]
     Indication: MULTIPLE MYELOMA
     Dosage: SEE IMAGE
     Route: 048
     Dates: start: 20040924, end: 20040927
  4. THALOMID [Suspect]
     Indication: MULTIPLE MYELOMA
     Dosage: SEE IMAGE
     Route: 048
     Dates: start: 20041019, end: 20041022
  5. THALOMID [Suspect]
     Indication: MULTIPLE MYELOMA
     Dosage: SEE IMAGE
     Route: 048
     Dates: start: 20041116, end: 20041216
  6. THALOMID [Suspect]
     Indication: MULTIPLE MYELOMA
     Dosage: SEE IMAGE
     Route: 048
     Dates: start: 20041231, end: 20050106
  7. MELPHALAN (MELPHALAN) [Suspect]
     Indication: MULTIPLE MYELOMA
     Dosage: 227 MG, INTRAVNEOUS;  INTRAVENOUS
     Route: 042
     Dates: start: 20041025, end: 20041025
  8. MELPHALAN (MELPHALAN) [Suspect]
     Indication: MULTIPLE MYELOMA
     Dosage: 227 MG, INTRAVNEOUS;  INTRAVENOUS
     Route: 042
     Dates: start: 20050125, end: 20050125
  9. DEXAMETHASONE [Suspect]
     Indication: MULTIPLE MYELOMA
     Dosage: 20MG DAILY FOR 4 DAYS EVERY 21 DAYS, ORAL
     Route: 048
     Dates: start: 20040801, end: 20050201
  10. BORTEZOMIB (BORTEZOMIB) [Suspect]
     Indication: MULTIPLE MYELOMA
     Dates: start: 20040821, end: 20040824
  11. BORTEZOMIB (BORTEZOMIB) [Suspect]
     Indication: MULTIPLE MYELOMA
     Dates: start: 20040924, end: 20040927
  12. CISPLATIN [Suspect]
     Indication: MULTIPLE MYELOMA
     Dates: start: 20040821, end: 20040824
  13. CISPLATIN [Suspect]
     Indication: MULTIPLE MYELOMA
     Dates: start: 20040924, end: 20040927
  14. ADRIAMYCIN PFS [Suspect]
     Indication: MULTIPLE MYELOMA
     Dates: start: 20040821, end: 20040824
  15. ADRIAMYCIN PFS [Suspect]
     Indication: MULTIPLE MYELOMA
     Dates: start: 20040924, end: 20040927
  16. CYCLOPHOSPHAMIDE [Suspect]
     Indication: MULTIPLE MYELOMA
     Dates: start: 20040821, end: 20040824
  17. CYCLOPHOSPHAMIDE [Suspect]
     Indication: MULTIPLE MYELOMA
     Dates: start: 20040924, end: 20040927
  18. ETOPOSIDE [Suspect]
     Indication: MULTIPLE MYELOMA
     Dates: start: 20040821, end: 20040824
  19. ETOPOSIDE [Suspect]
     Indication: MULTIPLE MYELOMA
     Dates: start: 20040924, end: 20040927
  20. FOLATE (FOLATE SODIUM) [Concomitant]
  21. NIFEREX (POLYSACCHARIDE-IRON COMPLEX) [Concomitant]
  22. PRILOSEC [Concomitant]
  23. CALCIUM GLUCONATE [Concomitant]
  24. AREDIA [Concomitant]

REACTIONS (14)
  - COUGH [None]
  - DIARRHOEA [None]
  - FEBRILE NEUTROPENIA [None]
  - HAEMOPTYSIS [None]
  - ILEUS [None]
  - ILEUS PARALYTIC [None]
  - NAUSEA [None]
  - PLEURAL EFFUSION [None]
  - PNEUMONIA [None]
  - PULMONARY OEDEMA [None]
  - RENAL FAILURE [None]
  - RESPIRATORY SYNCYTIAL VIRUS INFECTION [None]
  - THROMBOCYTOPENIA [None]
  - VOMITING [None]
